FAERS Safety Report 12581009 (Version 4)
Quarter: 2017Q2

REPORT INFORMATION
  Report Type: Spontaneous
  Country: JP (occurrence: JP)
  Receive Date: 20160721
  Receipt Date: 20170405
  Transmission Date: 20170830
  Serious: No
  Sender: FDA-Public Use
  Company Number: JP-JNJFOC-20160716479

PATIENT
  Age: 26 Year
  Sex: Male

DRUGS (5)
  1. URSO [Concomitant]
     Active Substance: URSODIOL
     Route: 048
  2. CELECOX [Concomitant]
     Active Substance: CELECOXIB
     Route: 048
  3. YONDELIS [Suspect]
     Active Substance: TRABECTEDIN
     Indication: EPITHELIOID SARCOMA METASTATIC
     Route: 041
     Dates: start: 20160606
  4. YONDELIS [Suspect]
     Active Substance: TRABECTEDIN
     Indication: EPITHELIOID SARCOMA METASTATIC
     Route: 041
     Dates: start: 20160516
  5. NEXIUM [Concomitant]
     Active Substance: ESOMEPRAZOLE MAGNESIUM
     Route: 048

REACTIONS (1)
  - Pleural thickening [Recovered/Resolved]

NARRATIVE: CASE EVENT DATE: 20160627
